FAERS Safety Report 7383934-8 (Version None)
Quarter: 2011Q1

REPORT INFORMATION
  Report Type: 
  Country: None (occurrence: None)
  Receive Date: 20110330
  Receipt Date: 20110323
  Transmission Date: 20110831
  Serious: Yes (Hospitalization)
  Sender: FDA-Public Use
  Company Number: JP-ABBOTT-11P-087-0713989-00

PATIENT
  Sex: Male

DRUGS (2)
  1. HUMIRA [Suspect]
     Indication: PUSTULAR PSORIASIS
     Route: 058
     Dates: start: 20110218, end: 20110317
  2. ETRETINATE [Concomitant]
     Indication: PUSTULAR PSORIASIS
     Dosage: DAILY DOSE: 40MG

REACTIONS (4)
  - C-REACTIVE PROTEIN ABNORMAL [None]
  - CARDIAC FAILURE [None]
  - MYOCARDITIS [None]
  - PYREXIA [None]
